FAERS Safety Report 24319065 (Version 1)
Quarter: 2024Q3

REPORT INFORMATION
  Report Type: Report from Study
  Country: US (occurrence: None)
  Receive Date: 20240913
  Receipt Date: 20240913
  Transmission Date: 20241017
  Serious: Yes (Hospitalization)
  Sender: ASTRAZENECA
  Company Number: 2024A204595

PATIENT
  Sex: Female

DRUGS (1)
  1. TAGRISSO [Suspect]
     Active Substance: OSIMERTINIB
     Route: 048

REACTIONS (6)
  - Urinary tract infection [Unknown]
  - Dyspnoea [Unknown]
  - Dysphagia [Unknown]
  - Cardiomegaly [Unknown]
  - Diarrhoea [Unknown]
  - Oesophageal spasm [Unknown]
